FAERS Safety Report 9781160 (Version 2)
Quarter: 2015Q1

REPORT INFORMATION
  Report Type: Spontaneous
  Country: US (occurrence: None)
  Receive Date: 20131220
  Receipt Date: 20150212
  Transmission Date: 20150721
  Serious: Yes (Disabling)
  Sender: FDA-Public Use
  Company Number: 1991597

PATIENT
  Sex: Male

DRUGS (1)
  1. METOCLOPRAMIDE INJECTION, USP, 5MG/ML FLIPTOP VIAL (METOCLOPRAMIDE) [Suspect]
     Active Substance: METOCLOPRAMIDE
     Indication: GASTROOESOPHAGEAL REFLUX DISEASE

REACTIONS (10)
  - Muscle twitching [None]
  - Asthenia [None]
  - Drug prescribing error [None]
  - Spinal disorder [None]
  - Joint range of motion decreased [None]
  - Muscle atrophy [None]
  - Nerve injury [None]
  - Product label issue [None]
  - Nervous system disorder [None]
  - Incorrect drug administration duration [None]
